FAERS Safety Report 24997954 (Version 1)
Quarter: 2025Q1

REPORT INFORMATION
  Report Type: Spontaneous
  Country: US (occurrence: US)
  Receive Date: 20250222
  Receipt Date: 20250222
  Transmission Date: 20250409
  Serious: No
  Sender: SANOFI AVENTIS
  Company Number: US-SANOFI-02405476

PATIENT

DRUGS (1)
  1. SARCLISA [Suspect]
     Active Substance: ISATUXIMAB-IRFC
     Indication: Plasma cell myeloma

REACTIONS (1)
  - Off label use [Unknown]
